FAERS Safety Report 22173967 (Version 1)
Quarter: 2023Q2

REPORT INFORMATION
  Report Type: Spontaneous
  Country: US (occurrence: None)
  Receive Date: 20230404
  Receipt Date: 20230404
  Transmission Date: 20230721
  Serious: No
  Sender: FDA-Public Use
  Company Number: 2023A056739

PATIENT
  Sex: Female

DRUGS (2)
  1. TEZSPIRE [Suspect]
     Active Substance: TEZEPELUMAB-EKKO
     Indication: Asthma
     Dosage: UNKNOWN
     Route: 058
  2. TEZSPIRE PRE-FILLED SYRINGE [Concomitant]
     Indication: Asthma
     Route: 058

REACTIONS (2)
  - Arthralgia [Unknown]
  - Peripheral swelling [Unknown]
